FAERS Safety Report 9099271 (Version 1)
Quarter: 2013Q1

REPORT INFORMATION
  Report Type: Report from Study
  Country: US (occurrence: US)
  Receive Date: 20130214
  Receipt Date: 20130214
  Transmission Date: 20140127
  Serious: Yes (Hospitalization)
  Sender: FDA-Public Use
  Company Number: US-009507513-1211USA006266

PATIENT
  Age: 63 Year
  Sex: Female
  Weight: 68.9 kg

DRUGS (6)
  1. VORINOSTAT [Suspect]
     Indication: GLIOBLASTOMA MULTIFORME
     Dosage: 300 MG, ON DAYS 1-5, WEEKLY
     Route: 048
     Dates: start: 20120529, end: 20120707
  2. VORINOSTAT [Suspect]
     Dosage: 400 MG, ON DAYS 1-7 AND 15-21
     Route: 048
     Dates: start: 20121011, end: 20121031
  3. VORINOSTAT [Suspect]
     Dosage: 400 MG ON DAYS 1-7 AND 15-21
     Route: 048
     Dates: start: 20121127, end: 20121217
  4. TEMOZOLOMIDE [Suspect]
     Indication: GLIOBLASTOMA MULTIFORME
     Dosage: 75 MG/M2, QD
     Route: 048
     Dates: start: 20120529
  5. TEMOZOLOMIDE [Suspect]
     Dosage: 200 MG/M2, ON DAYS 1-5
     Route: 048
     Dates: start: 20121011, end: 20121016
  6. TEMOZOLOMIDE [Suspect]
     Dosage: 200 MG/M2 ON DAYS 1-5
     Route: 048
     Dates: start: 20121127, end: 20121201

REACTIONS (2)
  - Convulsion [Not Recovered/Not Resolved]
  - Urinary tract infection [Recovering/Resolving]
